FAERS Safety Report 8854125 (Version 1)
Quarter: 2012Q4

REPORT INFORMATION
  Report Type: Spontaneous
  Country: US (occurrence: None)
  Receive Date: 20121019
  Receipt Date: 20121019
  Transmission Date: 20130627
  Serious: No
  Sender: FDA-Public Use
  Company Number: None

PATIENT
  Sex: Female
  Weight: 53.2 kg

DRUGS (1)
  1. CLOZAPINE [Suspect]
     Indication: PARANOID TYPE SCHIZOPHRENIA, UNSPECIFIED STATE
     Route: 048
     Dates: start: 20101227, end: 20120726

REACTIONS (1)
  - Convulsion [None]
